FAERS Safety Report 17910202 (Version 1)
Quarter: 2020Q2

REPORT INFORMATION
  Report Type: Spontaneous
  Country: FR (occurrence: FR)
  Receive Date: 20200618
  Receipt Date: 20200618
  Transmission Date: 20200714
  Serious: Yes (Hospitalization, Other)
  Sender: FDA-Public Use
  Company Number: FR-SUN PHARMACEUTICAL INDUSTRIES LTD-2020RR-250523

PATIENT
  Age: 57 Year
  Sex: Male

DRUGS (1)
  1. ATORVASTATINE [Suspect]
     Active Substance: ATORVASTATIN
     Indication: PROPHYLAXIS
     Dosage: 80 MILLIGRAM, UNK
     Route: 048

REACTIONS (1)
  - Immune-mediated myositis [Not Recovered/Not Resolved]

NARRATIVE: CASE EVENT DATE: 202004
